FAERS Safety Report 22244948 (Version 1)
Quarter: 2023Q2

REPORT INFORMATION
  Report Type: Spontaneous
  Country: AU (occurrence: AU)
  Receive Date: 20230424
  Receipt Date: 20230424
  Transmission Date: 20230722
  Serious: Yes (Other)
  Sender: FDA-Public Use
  Company Number: AU-AMGEN-AUSSP2023061941

PATIENT
  Age: 62 Year
  Sex: Female

DRUGS (1)
  1. REPATHA [Suspect]
     Active Substance: EVOLOCUMAB
     Indication: Type IIa hyperlipidaemia
     Dosage: 30 MILLIGRAM, Q2WK
     Route: 065

REACTIONS (16)
  - Neuropathy peripheral [Unknown]
  - Angina pectoris [Unknown]
  - Diabetes mellitus [Unknown]
  - Off label use [Unknown]
  - Asthenia [Unknown]
  - Illness [Unknown]
  - Renal pain [Unknown]
  - Pain in extremity [Unknown]
  - Fear of death [Unknown]
  - Insomnia [Unknown]
  - Abdominal pain upper [Unknown]
  - Dizziness [Unknown]
  - Headache [Unknown]
  - Back pain [Unknown]
  - Arthralgia [Unknown]
  - Influenza [Unknown]
